FAERS Safety Report 7374818-X (Version None)
Quarter: 2011Q1

REPORT INFORMATION
  Report Type: 
  Country: None (occurrence: None)
  Receive Date: 20110325
  Receipt Date: 20101228
  Transmission Date: 20110831
  Serious: No
  Sender: FDA-Public Use
  Company Number: US-MYLANLABS-2010S1023772

PATIENT
  Age: 79 Year
  Sex: Male

DRUGS (11)
  1. VYTORIN [Concomitant]
     Dosage: 10MG/40MG
  2. COREG [Concomitant]
  3. ACETAMINOPHEN W/ CODEINE [Concomitant]
     Indication: BREAKTHROUGH PAIN
     Dosage: TYLENOL #3
  4. ENALAPRIL MALEATE [Concomitant]
     Indication: BLOOD PRESSURE
  5. PROTONIX [Concomitant]
  6. ALLEGRA [Concomitant]
     Indication: HYPERSENSITIVITY
  7. FLOMAX [Concomitant]
  8. CYMBALTA [Concomitant]
  9. FENTANYL-100 [Suspect]
     Indication: OSTEOARTHRITIS
     Dosage: CHANGED Q72H
     Route: 062
     Dates: start: 20100601
  10. PLAVIX [Concomitant]
  11. WARFARIN [Concomitant]

REACTIONS (2)
  - VISUAL IMPAIRMENT [None]
  - DIZZINESS [None]
